FAERS Safety Report 19154739 (Version 1)
Quarter: 2021Q2

REPORT INFORMATION
  Report Type: Spontaneous
  Country: US (occurrence: US)
  Receive Date: 20210419
  Receipt Date: 20210419
  Transmission Date: 20210717
  Serious: Yes (Hospitalization)
  Sender: FDA-Public Use
  Company Number: US-LUPIN PHARMACEUTICALS INC.-2021-04768

PATIENT
  Age: 51 Year
  Sex: Female

DRUGS (7)
  1. DEXAMETHASONE. [Suspect]
     Active Substance: DEXAMETHASONE
     Indication: PAIN
     Dosage: 4 MILLIGRAM, QD
     Route: 048
  2. LIDOCAINE. [Suspect]
     Active Substance: LIDOCAINE
     Indication: PAIN
     Dosage: UNK
     Route: 061
  3. GABAPENTIN. [Suspect]
     Active Substance: GABAPENTIN
     Indication: PAIN
     Dosage: 3200 MILLIGRAM, QD
     Route: 048
  4. HYDROMORPHONE [Suspect]
     Active Substance: HYDROMORPHONE
     Indication: PAIN
     Dosage: LESS THAN OR EQUAL TO APPROXIMATELY 70 MG/DAY
     Route: 065
  5. METHADONE [Suspect]
     Active Substance: METHADONE HYDROCHLORIDE
     Indication: PAIN
     Dosage: LESS THAN OR EQUAL TO APPROXIMATELY 60 MG/DAY
     Route: 065
  6. METHADONE [Suspect]
     Active Substance: METHADONE HYDROCHLORIDE
     Dosage: DOSE DECREASED BY 50%
     Route: 065
  7. PAMIDRONATE [Suspect]
     Active Substance: PAMIDRONATE DISODIUM
     Indication: PAIN
     Dosage: UNK
     Route: 065

REACTIONS (2)
  - Drug ineffective [Unknown]
  - Hyperaesthesia [Recovering/Resolving]
